FAERS Safety Report 13506363 (Version 1)
Quarter: 2017Q2

REPORT INFORMATION
  Report Type: Spontaneous
  Country: US (occurrence: US)
  Receive Date: 20170502
  Receipt Date: 20170502
  Transmission Date: 20170830
  Serious: No
  Sender: FDA-Public Use
  Company Number: US-ROCHE-1420380

PATIENT
  Sex: Female

DRUGS (20)
  1. AVASTIN [Suspect]
     Active Substance: BEVACIZUMAB
     Indication: NEOPLASM MALIGNANT
  2. XELODA [Suspect]
     Active Substance: CAPECITABINE
     Indication: NON-SMALL CELL LUNG CANCER
     Route: 065
     Dates: start: 201203, end: 201207
  3. CARBOPLATIN. [Concomitant]
     Active Substance: CARBOPLATIN
     Indication: NEOPLASM MALIGNANT
  4. ALIMTA [Concomitant]
     Active Substance: PEMETREXED DISODIUM
     Indication: NON-SMALL CELL LUNG CANCER
  5. VOTRIENT [Suspect]
     Active Substance: PAZOPANIB HYDROCHLORIDE
     Indication: NON-SMALL CELL LUNG CANCER
     Route: 065
     Dates: start: 201203, end: 201207
  6. RAPAMUNE [Concomitant]
     Active Substance: SIROLIMUS
     Indication: NEOPLASM MALIGNANT
  7. PHENOBARBITAL. [Concomitant]
     Active Substance: PHENOBARBITAL
     Indication: NEOPLASM MALIGNANT
  8. CARBOPLATIN. [Concomitant]
     Active Substance: CARBOPLATIN
     Indication: NON-SMALL CELL LUNG CANCER
     Route: 065
     Dates: end: 20140605
  9. VOTRIENT [Suspect]
     Active Substance: PAZOPANIB HYDROCHLORIDE
     Indication: NEOPLASM MALIGNANT
  10. TARCEVA [Concomitant]
     Active Substance: ERLOTINIB HYDROCHLORIDE
     Indication: NEOPLASM MALIGNANT
  11. RAPAMUNE [Concomitant]
     Active Substance: SIROLIMUS
     Indication: NON-SMALL CELL LUNG CANCER
     Route: 065
     Dates: start: 201203, end: 201207
  12. PHENOBARBITAL. [Concomitant]
     Active Substance: PHENOBARBITAL
     Indication: NON-SMALL CELL LUNG CANCER
     Route: 065
     Dates: start: 201203, end: 201207
  13. GEMZAR [Concomitant]
     Active Substance: GEMCITABINE HYDROCHLORIDE
     Indication: NEOPLASM MALIGNANT
  14. ALIMTA [Concomitant]
     Active Substance: PEMETREXED DISODIUM
     Indication: NEOPLASM MALIGNANT
  15. ABRAXANE [Concomitant]
     Active Substance: PACLITAXEL
     Indication: NON-SMALL CELL LUNG CANCER
     Route: 065
     Dates: end: 20140605
  16. TARCEVA [Concomitant]
     Active Substance: ERLOTINIB HYDROCHLORIDE
     Indication: NON-SMALL CELL LUNG CANCER
     Route: 065
     Dates: start: 20140614
  17. ABRAXANE [Concomitant]
     Active Substance: PACLITAXEL
     Indication: NEOPLASM MALIGNANT
  18. GEMZAR [Concomitant]
     Active Substance: GEMCITABINE HYDROCHLORIDE
     Indication: NON-SMALL CELL LUNG CANCER
     Route: 065
  19. AVASTIN [Suspect]
     Active Substance: BEVACIZUMAB
     Indication: NON-SMALL CELL LUNG CANCER
     Route: 065
  20. XELODA [Suspect]
     Active Substance: CAPECITABINE
     Indication: NEOPLASM MALIGNANT

REACTIONS (5)
  - Cough [Unknown]
  - Neoplasm [Unknown]
  - Skin exfoliation [Recovered/Resolved]
  - Off label use [Unknown]
  - Condition aggravated [Unknown]
